FAERS Safety Report 11446545 (Version 4)
Quarter: 2015Q3

REPORT INFORMATION
  Report Type: Spontaneous
  Country: IQ (occurrence: IQ)
  Receive Date: 20150902
  Receipt Date: 20150925
  Transmission Date: 20151125
  Serious: Yes (Death, Hospitalization)
  Sender: FDA-Public Use
  Company Number: IQ-SA-2015SA132598

PATIENT
  Age: 43 Year
  Sex: Female
  Weight: 82 kg

DRUGS (6)
  1. OMEPRAZOLE. [Concomitant]
     Active Substance: OMEPRAZOLE
     Indication: PREMEDICATION
     Dates: start: 20150723, end: 20150812
  2. FLUOROURACIL. [Concomitant]
     Active Substance: FLUOROURACIL
     Indication: BREAST CANCER
     Route: 042
     Dates: start: 20150521, end: 20150702
  3. EPIRUBICIN [Concomitant]
     Active Substance: EPIRUBICIN
     Indication: BREAST CANCER
     Dates: start: 20150521, end: 20150702
  4. TAXOTERE [Suspect]
     Active Substance: DOCETAXEL
     Indication: BREAST CANCER
     Dosage: DOSAGE:160 MG IN 500 CC OF GLUCOSE WATER
     Route: 042
     Dates: start: 20150723, end: 20150813
  5. DEXAMETHASONE. [Concomitant]
     Active Substance: DEXAMETHASONE
     Indication: PREMEDICATION
     Dosage: 16 MG 12 HOURS, 6 HOURS BEFORE AND 6 HOURS AFTER TAXOTERE INFUSION
     Dates: start: 20150723, end: 20150813
  6. CYCLOPHOSPHAMIDE. [Concomitant]
     Active Substance: CYCLOPHOSPHAMIDE
     Indication: BREAST CANCER
     Route: 042
     Dates: start: 20150521, end: 20150702

REACTIONS (7)
  - Tachycardia [Fatal]
  - Respiratory distress [Fatal]
  - Pyrexia [Fatal]
  - Interstitial lung disease [Fatal]
  - Chest X-ray abnormal [Fatal]
  - Cough [Fatal]
  - Dyspnoea [Unknown]

NARRATIVE: CASE EVENT DATE: 20150827
